FAERS Safety Report 5126105-8 (Version None)
Quarter: 2006Q4

REPORT INFORMATION
  Report Type: 
  Country: None (occurrence: None)
  Receive Date: 20061012
  Receipt Date: 20060920
  Transmission Date: 20070319
  Serious: Yes (Other)
  Sender: FDA-Public Use
  Company Number: 2006UW18607

PATIENT
  Age: 78 Year
  Sex: Male
  Weight: 96 kg

DRUGS (7)
  1. ZOLADEX [Suspect]
     Indication: PROSTATE CANCER
     Route: 058
     Dates: start: 20060912
  2. CAPTOPRIL [Concomitant]
     Indication: HYPERTENSION
     Route: 048
     Dates: start: 20000101
  3. ASA INFANT [Concomitant]
     Indication: ANTICOAGULANT THERAPY
     Route: 048
     Dates: start: 20000101
  4. CYMBALTA [Concomitant]
     Indication: DEPRESSION
     Route: 048
     Dates: start: 20000101
  5. UNOPROST [Concomitant]
     Indication: URINARY INCONTINENCE
     Route: 048
     Dates: start: 20060801
  6. SUSTRATE [Concomitant]
     Indication: PROPHYLAXIS
     Route: 048
     Dates: start: 20020101
  7. PARKIDOPA [Concomitant]
     Indication: PARKINSON'S DISEASE
     Route: 048
     Dates: start: 20010101

REACTIONS (7)
  - ARTHRALGIA [None]
  - BLOOD URINE PRESENT [None]
  - BONE PAIN [None]
  - COUGH [None]
  - DYSPHONIA [None]
  - NERVOUSNESS [None]
  - RHINITIS [None]
